FAERS Safety Report 12500284 (Version 1)
Quarter: 2016Q2

REPORT INFORMATION
  Report Type: Report from Study
  Country: US (occurrence: US)
  Receive Date: 20160627
  Receipt Date: 20160627
  Transmission Date: 20160815
  Serious: No
  Sender: FDA-Public Use
  Company Number: US-AMGEN-USASL2016078771

PATIENT
  Age: 37 Year
  Sex: Female

DRUGS (1)
  1. ENBREL [Suspect]
     Active Substance: ETANERCEPT
     Indication: PRODUCT USED FOR UNKNOWN INDICATION
     Dosage: UNK
     Route: 065
     Dates: start: 20160603

REACTIONS (6)
  - Dizziness [Unknown]
  - Impaired driving ability [Unknown]
  - Skin warm [Unknown]
  - Erythema [Unknown]
  - Pruritus generalised [Unknown]
  - Food allergy [Unknown]

NARRATIVE: CASE EVENT DATE: 201606
